FAERS Safety Report 9490652 (Version 4)
Quarter: 2013Q4

REPORT INFORMATION
  Report Type: Spontaneous
  Country: BR (occurrence: BR)
  Receive Date: 20130830
  Receipt Date: 20131106
  Transmission Date: 20140711
  Serious: Yes (Other)
  Sender: FDA-Public Use
  Company Number: PHHY2013BR094335

PATIENT
  Age: 44 Year
  Sex: Female

DRUGS (4)
  1. ACLASTA [Suspect]
     Indication: OSTEOPOROSIS
     Dosage: 5MG/100ML, ONCE A YEAR
     Route: 042
     Dates: start: 20100806
  2. ACLASTA [Suspect]
     Dosage: 5MG/100ML, ONCE A YEAR
     Route: 042
     Dates: start: 2012
  3. CALCIUM [Concomitant]
     Dosage: UNK UKN, UNK
  4. VITAMIN D [Concomitant]
     Dosage: UNK UKN, UNK

REACTIONS (11)
  - Hypothyroidism [Not Recovered/Not Resolved]
  - Osteonecrosis of jaw [Not Recovered/Not Resolved]
  - Bone erosion [Unknown]
  - Abscess jaw [Not Recovered/Not Resolved]
  - Loose tooth [Recovering/Resolving]
  - Aphagia [Unknown]
  - Swelling [Unknown]
  - Pain [Unknown]
  - Erythema [Unknown]
  - Myalgia [Recovered/Resolved]
  - Pyrexia [Recovered/Resolved]
